FAERS Safety Report 5033164-X (Version None)
Quarter: 2006Q2

REPORT INFORMATION
  Report Type: 
  Country: None (occurrence: None)
  Receive Date: 20060622
  Receipt Date: 20060530
  Transmission Date: 20061013
  Serious: Yes (Death, Hospitalization)
  Sender: FDA-Public Use
  Company Number: JP-NOVOPROD-253853

PATIENT
  Age: 57 Year
  Sex: Male
  Weight: 52 kg

DRUGS (6)
  1. NOVOSEVEN [Suspect]
     Indication: HAEMORRHAGE
     Dosage: 4.8 MG, BID
     Dates: start: 20060522, end: 20060522
  2. NOVOSEVEN [Suspect]
     Dosage: 4.8 MG, BID
     Route: 042
     Dates: start: 20060514, end: 20060514
  3. NOVOSEVEN [Suspect]
     Dosage: 4.8 MG, BID
     Route: 042
     Dates: start: 20060516, end: 20060516
  4. FEIBA                              /00286701/ [Concomitant]
     Dosage: 3000 U, SINGLE
     Dates: start: 20060514, end: 20060514
  5. FEIBA                              /00286701/ [Concomitant]
     Dosage: 3000 U, SINGLE
     Dates: start: 20060516, end: 20060516
  6. FEIBA                              /00286701/ [Concomitant]
     Dosage: 3000 U, SINGLE
     Dates: start: 20060522, end: 20060522

REACTIONS (2)
  - CONCOMITANT DISEASE PROGRESSION [None]
  - TUMOUR EMBOLISM [None]
